FAERS Safety Report 4406829-8 (Version None)
Quarter: 2004Q3

REPORT INFORMATION
  Report Type: 
  Country: None (occurrence: None)
  Receive Date: 20040723
  Receipt Date: 20031121
  Transmission Date: 20050211
  Serious: Yes (Death)
  Sender: FDA-Public Use
  Company Number: US-MERCK-0311USA02551

PATIENT
  Age: 60 Year
  Sex: Male
  Weight: 77 kg

DRUGS (9)
  1. COMBIVENT [Concomitant]
     Route: 055
  2. ASPIRIN [Concomitant]
     Indication: PROPHYLAXIS
     Route: 065
     Dates: start: 19990101, end: 20020101
  3. ZESTRIL [Concomitant]
     Indication: HYPERTENSION
     Route: 065
     Dates: end: 20020310
  4. ZESTRIL [Concomitant]
     Route: 065
     Dates: start: 20020311, end: 20020101
  5. NAPROSYN [Concomitant]
     Route: 065
  6. ZANTAC [Concomitant]
     Route: 065
     Dates: end: 20020101
  7. VIOXX [Suspect]
     Indication: ARTHRITIS
     Route: 048
     Dates: start: 20020311, end: 20020717
  8. ZOCOR [Concomitant]
     Indication: BLOOD CHOLESTEROL INCREASED
     Route: 048
     Dates: end: 20020101
  9. HYTRIN [Concomitant]
     Route: 065
     Dates: end: 20020101

REACTIONS (7)
  - BACK PAIN [None]
  - CARDIAC ARREST [None]
  - CHEST PAIN [None]
  - FUNGAL INFECTION [None]
  - HYPERCHOLESTEROLAEMIA [None]
  - HYPERTENSION [None]
  - TENDONITIS [None]
